FAERS Safety Report 6354712-3 (Version None)
Quarter: 2009Q3

REPORT INFORMATION
  Report Type: 
  Country: None (occurrence: None)
  Receive Date: 20090914
  Receipt Date: 20090904
  Transmission Date: 20100115
  Serious: Yes (Hospitalization, Other)
  Sender: FDA-Public Use
  Company Number: US-ELI_LILLY_AND_COMPANY-US200907000856

PATIENT
  Age: 62 Year
  Sex: Male

DRUGS (1)
  1. HUMULIN R [Suspect]

REACTIONS (11)
  - ABDOMINAL PAIN UPPER [None]
  - ARRHYTHMIA [None]
  - ATRIAL FIBRILLATION [None]
  - CHEST DISCOMFORT [None]
  - CHEST PAIN [None]
  - CHRONIC OBSTRUCTIVE PULMONARY DISEASE [None]
  - CORONARY ARTERY DISEASE [None]
  - DYSPNOEA [None]
  - GAIT DISTURBANCE [None]
  - GASTRITIS [None]
  - NAUSEA [None]
